FAERS Safety Report 4595483-0 (Version None)
Quarter: 2005Q1

REPORT INFORMATION
  Report Type: 
  Country: None (occurrence: None)
  Receive Date: 20050302
  Receipt Date: 20050221
  Transmission Date: 20050727
  Serious: Yes (Other)
  Sender: FDA-Public Use
  Company Number: PH-JNJFOC-20050206141

PATIENT
  Sex: Male
  Weight: 39 kg

DRUGS (11)
  1. REMICADE [Suspect]
     Dosage: TOTAL OF 3 INFLIXIMAB DOSES
     Route: 042
  2. REMICADE [Suspect]
     Indication: ANKYLOSING SPONDYLITIS
     Route: 042
  3. METHOTREXATE [Concomitant]
     Indication: ANKYLOSING SPONDYLITIS
  4. MULTI-VITAMINS [Concomitant]
  5. MULTI-VITAMINS [Concomitant]
  6. MULTI-VITAMINS [Concomitant]
  7. MULTI-VITAMINS [Concomitant]
  8. MULTI-VITAMINS [Concomitant]
  9. MULTI-VITAMINS [Concomitant]
  10. MULTI-VITAMINS [Concomitant]
  11. MULTI-VITAMINS [Concomitant]

REACTIONS (6)
  - CONJUNCTIVAL HYPERAEMIA [None]
  - DERMATITIS EXFOLIATIVE [None]
  - EYE PRURITUS [None]
  - MALAISE [None]
  - PALMAR ERYTHEMA [None]
  - PYREXIA [None]
